FAERS Safety Report 8241402-5 (Version None)
Quarter: 2012Q1

REPORT INFORMATION
  Report Type: 
  Country: None (occurrence: None)
  Receive Date: 20120328
  Receipt Date: 20120319
  Transmission Date: 20120608
  Serious: Yes (Hospitalization)
  Sender: FDA-Public Use
  Company Number: JP-ALEXION-A201000851

PATIENT
  Age: 68 Year
  Sex: Male

DRUGS (7)
  1. SOLIRIS [Suspect]
     Indication: PAROXYSMAL NOCTURNAL HAEMOGLOBINURIA
     Dosage: 600 MG, QW
     Dates: start: 20080227
  2. BROTIZOLAM [Concomitant]
     Dosage: 0.25 MG, UNK
     Route: 048
  3. SOLIRIS [Suspect]
     Dosage: 900 MG, Q2W
     Route: 042
     Dates: start: 20080227
  4. URSODIOL [Concomitant]
     Dosage: 100 MG, UNK
     Route: 048
  5. WARFARIN SODIUM [Suspect]
     Dosage: UNK
     Dates: end: 20100705
  6. RABEPRAZOLE SODIUM [Concomitant]
     Dosage: 10 MG, UNK
     Route: 048
  7. LEVOFLOXACIN [Concomitant]
     Dosage: 500 MG, UNK
     Route: 048

REACTIONS (6)
  - HAEMOLYSIS [None]
  - DYSPNOEA EXERTIONAL [None]
  - JAUNDICE [None]
  - BLOOD BILIRUBIN INCREASED [None]
  - MUSCLE HAEMORRHAGE [None]
  - INFECTION [None]
